FAERS Safety Report 5171277-2 (Version None)
Quarter: 2006Q4

REPORT INFORMATION
  Report Type: 
  Country: None (occurrence: None)
  Receive Date: 20061207
  Receipt Date: 20061207
  Transmission Date: 20070319
  Serious: Yes (Hospitalization)
  Sender: FDA-Public Use
  Company Number: None

PATIENT
  Age: 83 Year
  Weight: 94.9379 kg

DRUGS (6)
  1. RITUXIMAB [Suspect]
     Indication: BURKITT'S LYMPHOMA
     Dosage: C- 1660 MG IV
     Route: 042
     Dates: start: 20060908
  2. RITUXIMAB [Suspect]
     Indication: BURKITT'S LYMPHOMA
     Dosage: C- 1660 MG IV
     Route: 042
     Dates: start: 20060912
  3. CYTOXAN [Suspect]
     Indication: BURKITT'S LYMPHOMA
     Dosage: O 2MG IV
  4. DOXORUBICIN HCL [Suspect]
     Indication: BURKITT'S LYMPHOMA
     Dosage: H-110 MG IV
  5. VINCRISTINE [Suspect]
     Indication: BURKITT'S LYMPHOMA
     Dosage: R 829 MG
  6. PREDNISOLONE [Suspect]

REACTIONS (1)
  - FEBRILE NEUTROPENIA [None]
